FAERS Safety Report 19547810 (Version 3)
Quarter: 2021Q3

REPORT INFORMATION
  Report Type: Spontaneous
  Country: JP (occurrence: JP)
  Receive Date: 20210714
  Receipt Date: 20210803
  Transmission Date: 20211014
  Serious: Yes (Hospitalization)
  Sender: FDA-Public Use
  Company Number: JP-CELGENEUS-JPN-20210701934

PATIENT
  Age: 70 Year
  Sex: Female
  Weight: 52.9 kg

DRUGS (9)
  1. ABRAXANE [Suspect]
     Active Substance: PACLITAXEL
     Route: 041
     Dates: start: 20190821, end: 20190821
  2. BRANUTE [Concomitant]
     Indication: HYPOPROTEINAEMIA
     Dosage: 14.19 G
     Route: 048
     Dates: start: 20190226, end: 20200524
  3. TAKECAB [Concomitant]
     Active Substance: VONOPRAZAN FUMARATE
     Indication: GASTROOESOPHAGEAL REFLUX DISEASE
     Dosage: 10MG
     Route: 048
     Dates: start: 20190813, end: 20200524
  4. VIVIANT [Concomitant]
     Active Substance: BAZEDOXIFENE
     Indication: OSTEOPOROSIS
     Dosage: 20MG
     Route: 048
     Dates: start: 20200524
  5. CYRAMZA [Suspect]
     Active Substance: RAMUCIRUMAB
     Indication: GASTRIC CANCER
     Dosage: DAYS 1 AND 15 OF EACH 28?DAY CYCLE
     Route: 041
     Dates: start: 201908
  6. GLACTIV [Concomitant]
     Active Substance: SITAGLIPTIN
     Indication: DIABETES MELLITUS
     Dosage: 50MG
     Route: 048
     Dates: start: 20190718, end: 20200524
  7. ABRAXANE [Suspect]
     Active Substance: PACLITAXEL
     Indication: GASTRIC CANCER
     Dosage: DAYS 1, 8, AND 15
     Route: 041
     Dates: start: 201908
  8. ABRAXANE [Suspect]
     Active Substance: PACLITAXEL
     Route: 041
     Dates: start: 20191001
  9. CYRAMZA [Suspect]
     Active Substance: RAMUCIRUMAB
     Dosage: DAYS 1 AND 15 OF EACH 28?DAY CYCLE
     Route: 041
     Dates: start: 20190821, end: 20191016

REACTIONS (2)
  - Urinary retention [Not Recovered/Not Resolved]
  - Neutrophil count decreased [Unknown]

NARRATIVE: CASE EVENT DATE: 201908
